FAERS Safety Report 7238134-9 (Version None)
Quarter: 2011Q1

REPORT INFORMATION
  Report Type: 
  Country: None (occurrence: None)
  Receive Date: 20110119
  Receipt Date: 20110119
  Transmission Date: 20110831
  Serious: Yes (Life-Threatening, Hospitalization, Disabling, Other)
  Sender: FDA-Public Use
  Company Number: None

PATIENT
  Sex: Female
  Weight: 77.1115 kg

DRUGS (1)
  1. DARVOCET [Suspect]
     Indication: ARTHRITIS
     Dosage: 1 TABLET 8 HOURS PO
     Route: 048
     Dates: start: 19900101, end: 20110101

REACTIONS (1)
  - ARRHYTHMIA [None]
